FAERS Safety Report 7897488 (Version 4)
Quarter: 2013Q1

REPORT INFORMATION
  Report Type: Report from Study
  Country: CA (occurrence: CA)
  Receive Date: 20110413
  Receipt Date: 20130329
  Transmission Date: 20140127
  Serious: Yes (Hospitalization, Other)
  Sender: FDA-Public Use
  Company Number: CA-ABBOTT-11P-028-0717810-00

PATIENT
  Age: 47 None
  Sex: Male
  Weight: 85.35 kg

DRUGS (9)
  1. HUMIRA 40 MG/ 0.8 ML PRE-FILLED SYRINGE [Suspect]
     Indication: RHEUMATOID ARTHRITIS
     Route: 058
     Dates: start: 20071121, end: 201302
  2. CYCLOSPORIN [Concomitant]
     Indication: IMMUNOSUPPRESSANT DRUG THERAPY
     Dosage: 1 TAB AM + 1.5 TAB PM
     Dates: start: 2001
  3. PREDNISONE [Concomitant]
     Indication: RHEUMATOID ARTHRITIS
     Dates: start: 2001
  4. PREDNISONE [Concomitant]
     Indication: POLYMYOSITIS
  5. FOLIC ACID [Concomitant]
     Indication: DRUG LEVEL
     Route: 048
     Dates: start: 2001
  6. METHOTREXATE [Concomitant]
     Indication: RHEUMATOID ARTHRITIS
     Route: 058
     Dates: start: 2001
  7. METHOTREXATE [Concomitant]
     Indication: POLYMYOSITIS
  8. LEFLUNOMIDE [Concomitant]
     Indication: RHEUMATOID ARTHRITIS
     Dates: start: 2005, end: 20110309
  9. HYDROXYCHLOROQUINE [Concomitant]
     Indication: RHEUMATOID ARTHRITIS
     Route: 048
     Dates: end: 20110309

REACTIONS (6)
  - Coronary artery occlusion [Unknown]
  - Myocardial infarction [Recovered/Resolved]
  - Myocardial infarction [Recovered/Resolved]
  - Palpitations [Not Recovered/Not Resolved]
  - Myocardial infarction [Unknown]
  - Stress [Unknown]
